FAERS Safety Report 10298924 (Version 3)
Quarter: 2015Q3

REPORT INFORMATION
  Report Type: Spontaneous
  Country: US (occurrence: US)
  Receive Date: 20140711
  Receipt Date: 20150814
  Transmission Date: 20151125
  Serious: No
  Sender: FDA-Public Use
  Company Number: US-GILEAD-2013-0079297

PATIENT
  Age: 70 Year
  Sex: Male

DRUGS (17)
  1. LEVOCETIRIZINE [Concomitant]
     Active Substance: LEVOCETIRIZINE
  2. PREDNISONE. [Concomitant]
     Active Substance: PREDNISONE
  3. LEVOCETIRIZINE [Concomitant]
     Active Substance: LEVOCETIRIZINE
  4. OXYGEN. [Concomitant]
     Active Substance: OXYGEN
  5. METOPROLOL [Concomitant]
     Active Substance: METOPROLOL
  6. KLOR-CON [Concomitant]
     Active Substance: POTASSIUM CHLORIDE
  7. TORSEMIDE. [Concomitant]
     Active Substance: TORSEMIDE
  8. ASPIRIN. [Concomitant]
     Active Substance: ASPIRIN
  9. METOLAZONE. [Concomitant]
     Active Substance: METOLAZONE
  10. DIGOXIN. [Concomitant]
     Active Substance: DIGOXIN
  11. TYVASO [Concomitant]
     Active Substance: TREPROSTINIL
  12. WARFARIN SODIUM. [Concomitant]
     Active Substance: WARFARIN SODIUM
  13. EPLERENONE. [Concomitant]
     Active Substance: EPLERENONE
  14. DUONEB [Concomitant]
     Active Substance: ALBUTEROL SULFATE\IPRATROPIUM BROMIDE
  15. LETAIRIS [Suspect]
     Active Substance: AMBRISENTAN
     Indication: PULMONARY ARTERIAL HYPERTENSION
     Dosage: 10 MG, QD
     Dates: start: 20130325
  16. MAGNESIUM [Concomitant]
     Active Substance: MAGNESIUM
  17. IRON [Concomitant]
     Active Substance: IRON

REACTIONS (2)
  - Epigastric discomfort [Unknown]
  - Diarrhoea [Unknown]
